FAERS Safety Report 9813921 (Version 1)
Quarter: 2014Q1

REPORT INFORMATION
  Report Type: Spontaneous
  Country: DE (occurrence: DE)
  Receive Date: 20140113
  Receipt Date: 20140113
  Transmission Date: 20141002
  Serious: Yes (Other)
  Sender: FDA-Public Use
  Company Number: PHHY2014DE002173

PATIENT
  Age: 35 Year
  Sex: Female

DRUGS (8)
  1. TRIAMCINOLONE [Suspect]
     Indication: BACK PAIN
     Dosage: 20 MG, QW
     Route: 065
     Dates: start: 201206
  2. RITONAVIR [Interacting]
     Indication: HIV INFECTION
     Dosage: 100 MG, BID
  3. EMTRICITABINE W/TENOFOVIR [Concomitant]
     Indication: HIV INFECTION
     Dosage: 1 DF, QD
  4. SAQUINAVIR [Concomitant]
     Indication: HIV INFECTION
     Dosage: 1000 MG, UNK
  5. BUCAIN [Concomitant]
     Dosage: 3 ML, QW
     Dates: start: 201206
  6. POTASSIUM [Concomitant]
  7. HYDROCORTISONE [Concomitant]
     Dosage: 15 MG, UNK
  8. RALTEGRAVIR [Concomitant]
     Dosage: 400 MG, BID

REACTIONS (10)
  - Cushing^s syndrome [Recovered/Resolved]
  - Oedema [Recovered/Resolved]
  - Swelling face [Recovered/Resolved]
  - Muscular weakness [Recovered/Resolved]
  - Cushingoid [Recovered/Resolved]
  - Central obesity [Recovered/Resolved]
  - Lipohypertrophy [Recovered/Resolved]
  - Adrenal suppression [Recovered/Resolved]
  - Drug level increased [Recovered/Resolved]
  - Drug interaction [Recovered/Resolved]
